FAERS Safety Report 5063038-X (Version None)
Quarter: 2006Q3

REPORT INFORMATION
  Report Type: 
  Country: None (occurrence: None)
  Receive Date: 20060727
  Receipt Date: 20051108
  Transmission Date: 20061208
  Serious: Yes (Hospitalization)
  Sender: FDA-Public Use
  Company Number: PHMT2005CA00560

PATIENT
  Age: 58 Year
  Sex: Male
  Weight: 72.562 kg

DRUGS (2)
  1. LITHIUM CARBONATE [Concomitant]
     Dosage: 300 MG, BID
  2. CLOZARIL [Suspect]
     Dosage: 100 MG QAM, 400 MG QHS
     Route: 048
     Dates: start: 20051101, end: 20051107

REACTIONS (4)
  - CONFUSIONAL STATE [None]
  - DELIRIUM [None]
  - DEPRESSED LEVEL OF CONSCIOUSNESS [None]
  - MENINGOCOCCAL INFECTION [None]
